FAERS Safety Report 25113425 (Version 2)
Quarter: 2025Q2

REPORT INFORMATION
  Report Type: Spontaneous
  Country: IT (occurrence: IT)
  Receive Date: 20250324
  Receipt Date: 20250519
  Transmission Date: 20250716
  Serious: Yes (Hospitalization)
  Sender: PFIZER
  Company Number: IT-PFIZER INC-202500062600

PATIENT
  Age: 69 Year
  Sex: Male

DRUGS (1)
  1. ELRANATAMAB [Suspect]
     Active Substance: ELRANATAMAB

REACTIONS (6)
  - Cytokine release syndrome [Recovered/Resolved]
  - Neutropenia [Unknown]
  - Hypogammaglobulinaemia [Unknown]
  - Rhinovirus infection [Unknown]
  - Uveitis [Unknown]
  - Immune effector cell-associated neurotoxicity syndrome [Unknown]
